FAERS Safety Report 4983152-4 (Version None)
Quarter: 2006Q2

REPORT INFORMATION
  Report Type: 
  Country: None (occurrence: None)
  Receive Date: 20060426
  Receipt Date: 20060306
  Transmission Date: 20061013
  Serious: Yes (Life-Threatening)
  Sender: FDA-Public Use
  Company Number: PL-AVENTIS-200612224GDDC

PATIENT
  Age: 62 Year
  Sex: Female
  Weight: 60 kg

DRUGS (6)
  1. ARAVA [Suspect]
     Indication: RHEUMATOID ARTHRITIS
     Route: 048
     Dates: start: 20050820, end: 20060223
  2. POLPRAZOL [Concomitant]
     Indication: GASTRITIS
     Dates: start: 20050801
  3. ENARENAL [Concomitant]
     Indication: HYPERTENSION
     Dates: start: 20050801
  4. BISOHEXAL [Concomitant]
     Indication: HYPERTENSION
     Dates: start: 20050801
  5. ENCORTON [Concomitant]
     Route: 048
  6. NABUMETONE [Concomitant]
     Dosage: DOSE: UNK

REACTIONS (3)
  - GASTRIC CANCER [None]
  - GASTRITIS [None]
  - WEIGHT DECREASED [None]
